FAERS Safety Report 8033616-4 (Version None)
Quarter: 2011Q4

REPORT INFORMATION
  Report Type: 
  Country: None (occurrence: None)
  Receive Date: 20111223
  Receipt Date: 20111215
  Transmission Date: 20120403
  Serious: Yes (Death)
  Sender: FDA-Public Use
  Company Number: 2011SP048405

PATIENT
  Age: 25 Year
  Sex: Female

DRUGS (8)
  1. CLINDAMYCIN HCL [Concomitant]
  2. REMERON [Suspect]
     Indication: ANXIETY
     Dosage: 15 MG;QD;PO, 30 MG;QD;PO
     Route: 048
     Dates: start: 20110902, end: 20110912
  3. REMERON [Suspect]
     Indication: DEPRESSION
     Dosage: 15 MG;QD;PO, 30 MG;QD;PO
     Route: 048
     Dates: start: 20110902, end: 20110912
  4. REMERON [Suspect]
     Indication: ANXIETY
     Dosage: 15 MG;QD;PO, 30 MG;QD;PO
     Route: 048
     Dates: start: 20110913
  5. REMERON [Suspect]
     Indication: DEPRESSION
     Dosage: 15 MG;QD;PO, 30 MG;QD;PO
     Route: 048
     Dates: start: 20110913
  6. RULID [Concomitant]
  7. RIZABEN [Concomitant]
  8. LENDORMIN [Concomitant]

REACTIONS (1)
  - COMPLETED SUICIDE [None]
